FAERS Safety Report 19613515 (Version 1)
Quarter: 2021Q3

REPORT INFORMATION
  Report Type: Spontaneous
  Country: US (occurrence: US)
  Receive Date: 20210727
  Receipt Date: 20210727
  Transmission Date: 20211014
  Serious: Yes (Other)
  Sender: FDA-Public Use
  Company Number: US-GLAXOSMITHKLINE-US2021GSK157783

PATIENT
  Sex: Female

DRUGS (6)
  1. RANITIDINE HYDROCHLORIDE. [Suspect]
     Active Substance: RANITIDINE HYDROCHLORIDE
     Indication: GASTRITIS
     Dosage: UNK UNK, BID
     Route: 065
     Dates: start: 198701, end: 201701
  2. RANITIDINE CAPSULE [Suspect]
     Active Substance: RANITIDINE
     Indication: GASTRITIS
     Dosage: UNK, BID
     Route: 065
     Dates: start: 198701, end: 201701
  3. ZANTAC [Suspect]
     Active Substance: RANITIDINE HYDROCHLORIDE
     Indication: GASTRITIS
     Dosage: UNK, BID
     Route: 065
     Dates: start: 198701, end: 201701
  4. RANITIDINE HYDROCHLORIDE. [Suspect]
     Active Substance: RANITIDINE HYDROCHLORIDE
     Indication: GASTRITIS
     Dosage: UNK UNK, BID
     Route: 065
     Dates: start: 198701, end: 201701
  5. ZANTAC [Suspect]
     Active Substance: RANITIDINE HYDROCHLORIDE
     Indication: GASTRITIS
     Dosage: UNK, BID
     Route: 065
     Dates: start: 198701, end: 201701
  6. RANITIDINE. [Suspect]
     Active Substance: RANITIDINE
     Indication: GASTRITIS
     Dosage: UNK, BID
     Route: 065
     Dates: start: 198701, end: 201701

REACTIONS (1)
  - Colorectal cancer [Unknown]
